FAERS Safety Report 7927392-0 (Version None)
Quarter: 2011Q4

REPORT INFORMATION
  Report Type: 
  Country: None (occurrence: None)
  Receive Date: 20111118
  Receipt Date: 20111114
  Transmission Date: 20120403
  Serious: Yes (Hospitalization, Other)
  Sender: FDA-Public Use
  Company Number: PHHY2011US50737

PATIENT
  Sex: Female

DRUGS (5)
  1. EXJADE [Suspect]
     Indication: SICKLE CELL ANAEMIA WITH CRISIS
     Dosage: 1000 MG, DAILY
     Route: 048
     Dates: start: 20110330
  2. EXJADE [Suspect]
     Dosage: 1000 MG, BID
     Route: 048
     Dates: start: 20110401
  3. FOLIC ACID [Concomitant]
  4. PERCOCET [Concomitant]
  5. HYDROXYUREA [Concomitant]

REACTIONS (4)
  - PULMONARY EMBOLISM [None]
  - ARTHRALGIA [None]
  - JOINT DISLOCATION [None]
  - BACK PAIN [None]
